FAERS Safety Report 8276499-X (Version None)
Quarter: 2012Q2

REPORT INFORMATION
  Report Type: 
  Country: None (occurrence: None)
  Receive Date: 20120412
  Receipt Date: 20120404
  Transmission Date: 20120825
  Serious: Yes (Hospitalization)
  Sender: FDA-Public Use
  Company Number: US-ROXANE LABORATORIES, INC.-2012-RO-00993RO

PATIENT
  Age: 58 Year
  Sex: Male

DRUGS (10)
  1. AMLODIPINE [Suspect]
     Indication: HYPERTENSION
  2. FOSINOPRIL SODIUM [Suspect]
     Indication: HYPERTENSION
  3. SIMVASTATIN [Suspect]
  4. LITHIUM CARBONATE [Suspect]
     Indication: BIPOLAR DISORDER
     Dosage: 900 MG
  5. LITHIUM CARBONATE [Suspect]
     Dosage: 1125 MG
  6. COCA-COLA ZERO [Suspect]
  7. METOPROLOL TARTRATE [Suspect]
     Indication: HYPERTENSION
  8. INSULIN GLARGINE [Concomitant]
     Route: 058
  9. ASPIRIN [Suspect]
  10. INSULIN LISPRO [Concomitant]
     Route: 058

REACTIONS (2)
  - ABDOMINAL PAIN UPPER [None]
  - ANTIPSYCHOTIC DRUG LEVEL BELOW THERAPEUTIC [None]
